FAERS Safety Report 16205225 (Version 1)
Quarter: 2019Q2

REPORT INFORMATION
  Report Type: Spontaneous
  Country: None (occurrence: CO)
  Receive Date: 20190416
  Receipt Date: 20190416
  Transmission Date: 20190711
  Serious: Yes (Other)
  Sender: FDA-Public Use
  Company Number: CO-POPULATION COUNCIL, INC.-2065938

PATIENT
  Age: 25 Year
  Sex: Female
  Weight: 61 kg

DRUGS (1)
  1. JADELLE [Suspect]
     Active Substance: LEVONORGESTREL
     Indication: CONTRACEPTION
     Route: 059
     Dates: start: 20160525, end: 20190327

REACTIONS (1)
  - Genital haemorrhage [Recovered/Resolved]

NARRATIVE: CASE EVENT DATE: 20160525
